FAERS Safety Report 20222763 (Version 1)
Quarter: 2021Q4

REPORT INFORMATION
  Report Type: Spontaneous
  Country: MY (occurrence: MY)
  Receive Date: 20211223
  Receipt Date: 20211223
  Transmission Date: 20220303
  Serious: Yes (Other)
  Sender: FDA-Public Use
  Company Number: MY-PFIZER INC-202101791158

PATIENT
  Age: 44 Year
  Sex: Male

DRUGS (1)
  1. NEURONTIN [Suspect]
     Active Substance: GABAPENTIN
     Indication: Neuralgia
     Dosage: 300 MG, DAILY
     Route: 048

REACTIONS (4)
  - Hallucination, visual [Recovered/Resolved]
  - Disorientation [Recovered/Resolved]
  - Speech disorder [Recovered/Resolved]
  - Aggression [Recovered/Resolved]
